FAERS Safety Report 5608348-X (Version None)
Quarter: 2008Q1

REPORT INFORMATION
  Report Type: 
  Country: None (occurrence: None)
  Receive Date: 20080111
  Receipt Date: 20070914
  Transmission Date: 20080703
  Serious: Yes (Other)
  Sender: FDA-Public Use
  Company Number: HQWYE067229JAN03

PATIENT
  Age: 51 Year
  Sex: Female
  Weight: 95.34 kg

DRUGS (1)
  1. PREMPRO [Suspect]
     Indication: HORMONE REPLACEMENT THERAPY
     Dates: start: 20010501, end: 20010801

REACTIONS (1)
  - CEREBROVASCULAR ACCIDENT [None]
